FAERS Safety Report 17861192 (Version 1)
Quarter: 2020Q2

REPORT INFORMATION
  Report Type: Spontaneous
  Country: US (occurrence: US)
  Receive Date: 20200604
  Receipt Date: 20200604
  Transmission Date: 20200714
  Serious: No
  Sender: FDA-Public Use
  Company Number: US-HARMONY BIOSCIENCES-2020HMY00189

PATIENT
  Age: 52 Year
  Sex: Female
  Weight: 54.42 kg

DRUGS (11)
  1. WAKIX [Suspect]
     Active Substance: PITOLISANT HYDROCHLORIDE
     Indication: NARCOLEPSY
     Dosage: 8.9 MG, 1X/DAY
     Route: 048
     Dates: start: 20200221, end: 20200222
  2. ALLERGRA-D 12 HOUR [Concomitant]
  3. BONE HEALTH SUPPLEMENT [Concomitant]
  4. WAKIX [Suspect]
     Active Substance: PITOLISANT HYDROCHLORIDE
     Indication: NARCOLEPSY
     Dosage: 17.8 MG, 1X/DAY
     Route: 048
     Dates: start: 20200228, end: 202003
  5. MULTIVITAMINS WITH CALCIUM [Concomitant]
  6. WAKIX [Suspect]
     Active Substance: PITOLISANT HYDROCHLORIDE
     Dosage: 8.9 MG, 1X/DAY
     Route: 048
     Dates: start: 20200224, end: 20200227
  7. XYREM [Concomitant]
     Active Substance: SODIUM OXYBATE
     Dosage: UNK UNK, TWICE A NIGHT
  8. WAKIX [Suspect]
     Active Substance: PITOLISANT HYDROCHLORIDE
     Indication: HYPERSOMNIA
     Dosage: 4.45 MG, 1X/DAY
     Route: 048
     Dates: start: 20200223, end: 20200223
  9. WAKIX [Suspect]
     Active Substance: PITOLISANT HYDROCHLORIDE
     Indication: HYPERSOMNIA
     Dosage: 35.6 MG, 1X/DAY
     Route: 048
     Dates: start: 202003
  10. CALCIUM PLUS D3 ER [Concomitant]
  11. GENERIC FLONASE ALLERGY RELIEF [Concomitant]

REACTIONS (11)
  - Headache [Not Recovered/Not Resolved]
  - Dyspepsia [Not Recovered/Not Resolved]
  - Hot flush [Unknown]
  - Myalgia [Unknown]
  - Nausea [Not Recovered/Not Resolved]
  - Dry mouth [Unknown]
  - Conjunctivitis [Not Recovered/Not Resolved]
  - Inappropriate schedule of product administration [Recovered/Resolved]
  - Product administration error [Recovered/Resolved]
  - Foreign body in throat [Not Recovered/Not Resolved]
  - Unevaluable event [Not Recovered/Not Resolved]

NARRATIVE: CASE EVENT DATE: 2020
